FAERS Safety Report 7775382-3 (Version None)
Quarter: 2011Q3

REPORT INFORMATION
  Report Type: 
  Country: None (occurrence: None)
  Receive Date: 20110923
  Receipt Date: 20110914
  Transmission Date: 20111222
  Serious: Yes (Hospitalization, Other)
  Sender: FDA-Public Use
  Company Number: PHEH2011US04154

PATIENT
  Age: 17 Year
  Sex: Female

DRUGS (2)
  1. PULMOZYME [Concomitant]
     Dosage: UNK UKN, UNK
  2. TOBI [Suspect]
     Dosage: 300 MG, BID (28 DAYS ON AND 28 DAYS OFF)
     Dates: start: 20071211

REACTIONS (1)
  - INFECTION [None]
